FAERS Safety Report 20641424 (Version 2)
Quarter: 2022Q2

REPORT INFORMATION
  Report Type: Other
  Country: JP (occurrence: JP)
  Receive Date: 20220328
  Receipt Date: 20220401
  Transmission Date: 20220721
  Serious: Yes (Death, Other)
  Sender: FDA-Public Use
  Company Number: JP-CHUGAI-2022009598

PATIENT
  Age: 48 Year
  Sex: Female

DRUGS (2)
  1. AVASTIN [Suspect]
     Active Substance: BEVACIZUMAB
     Indication: Anaplastic astrocytoma
     Dosage: 10 MILLIGRAM/KILOGRAM, ONCE/2WEEKS
     Route: 041
  2. TEMOZOLOMIDE [Concomitant]
     Active Substance: TEMOZOLOMIDE
     Indication: Anaplastic astrocytoma
     Route: 065

REACTIONS (3)
  - Ischaemic stroke [Unknown]
  - Disease progression [Fatal]
  - Off label use [Unknown]
